FAERS Safety Report 8300156-4 (Version None)
Quarter: 2012Q2

REPORT INFORMATION
  Report Type: 
  Country: None (occurrence: None)
  Receive Date: 20120420
  Receipt Date: 20120411
  Transmission Date: 20120825
  Serious: Yes (Other)
  Sender: FDA-Public Use
  Company Number: US-BAYER-2012-030100

PATIENT
  Age: 31 Year
  Sex: Female
  Weight: 78.005 kg

DRUGS (2)
  1. IBUPROFEN [Concomitant]
     Indication: ANALGESIC THERAPY
  2. MIRENA [Suspect]
     Indication: CONTRACEPTION
     Dosage: 20 MCG/24HR, CONT
     Route: 015
     Dates: start: 20090915, end: 20120216

REACTIONS (9)
  - DEVICE EXPULSION [None]
  - BREAST TENDERNESS [None]
  - ABDOMINAL PAIN LOWER [None]
  - ABDOMINAL PAIN [None]
  - PREGNANCY WITH CONTRACEPTIVE DEVICE [None]
  - DEVICE DIFFICULT TO USE [None]
  - DEVICE DISLOCATION [None]
  - DEVICE DEPLOYMENT ISSUE [None]
  - CAESAREAN SECTION [None]
